FAERS Safety Report 9329624 (Version 2)
Quarter: 2014Q2

REPORT INFORMATION
  Report Type: Spontaneous
  Country: US (occurrence: US)
  Receive Date: 20130604
  Receipt Date: 20140524
  Transmission Date: 20141212
  Serious: No
  Sender: FDA-Public Use
  Company Number: US-SANOFI-AVENTIS-2013SA031801

PATIENT
  Age: 63 Year
  Sex: Female

DRUGS (4)
  1. LANTUS SOLOSTAR [Suspect]
     Indication: TYPE 2 DIABETES MELLITUS
     Dosage: DOSE:35 UNIT(S)
     Route: 051
     Dates: start: 201102
  2. LANTUS SOLOSTAR [Suspect]
     Indication: TYPE 2 DIABETES MELLITUS
     Dosage: DOSE:35 UNIT(S)
     Route: 051
     Dates: start: 201102
  3. SOLOSTAR [Concomitant]
     Indication: DEVICE THERAPY
     Dates: start: 201102
  4. SOLOSTAR [Concomitant]
     Indication: DEVICE THERAPY
     Dates: start: 201102

REACTIONS (3)
  - Feeling abnormal [Unknown]
  - Injection site pain [Unknown]
  - Product odour abnormal [Unknown]
